FAERS Safety Report 5557209-3 (Version None)
Quarter: 2007Q4

REPORT INFORMATION
  Report Type: 
  Country: None (occurrence: None)
  Receive Date: 20071211
  Receipt Date: 20071126
  Transmission Date: 20080405
  Serious: Yes (Other)
  Sender: FDA-Public Use
  Company Number: 8011092

PATIENT
  Age: 31 Year
  Sex: Female

DRUGS (3)
  1. KEPPRA [Suspect]
     Dosage: 750 MG 2/D
  2. NORINYL 1+35 28-DAY [Suspect]
     Indication: CONTRACEPTION
  3. LAMOTRIGINE [Concomitant]

REACTIONS (2)
  - DRUG EXPOSURE DURING PREGNANCY [None]
  - PREGNANCY ON ORAL CONTRACEPTIVE [None]
